FAERS Safety Report 9693059 (Version 1)
Quarter: 2013Q4

REPORT INFORMATION
  Report Type: Spontaneous
  Country: US (occurrence: US)
  Receive Date: 20131118
  Receipt Date: 20131118
  Transmission Date: 20140711
  Serious: Yes (Other)
  Sender: FDA-Public Use
  Company Number: US-SA-2013SA118841

PATIENT
  Sex: 0

DRUGS (2)
  1. LANTUS [Suspect]
     Route: 065
  2. HUMALOG [Suspect]
     Route: 065

REACTIONS (4)
  - Gastric cancer [Unknown]
  - Hepatic failure [Unknown]
  - Fibromyalgia [Unknown]
  - Stress [Unknown]
